FAERS Safety Report 8678548 (Version 2)
Quarter: 2012Q4

REPORT INFORMATION
  Report Type: 
  Country: US (occurrence: US)
  Receive Date: 20120723
  Receipt Date: 20120920
  Transmission Date: 20130627
  Serious: Yes (Hospitalization)
  Sender: FDA-Public Use
  Company Number: US-ASTRAZENECA-2012SE49098

PATIENT
  Age: 64 Year
  Sex: Male

DRUGS (1)
  1. SYMBICORT PMDI [Suspect]
     Route: 055

REACTIONS (4)
  - Pneumonia [Unknown]
  - Asthma [Unknown]
  - Hypertension [Unknown]
  - Respiratory disorder [Unknown]
